FAERS Safety Report 24977706 (Version 1)
Quarter: 2025Q1

REPORT INFORMATION
  Report Type: Spontaneous
  Country: CA (occurrence: CA)
  Receive Date: 20250217
  Receipt Date: 20250217
  Transmission Date: 20250409
  Serious: Yes (Hospitalization, Other)
  Sender: Kenvue
  Company Number: CA-KENVUE-20250203508

PATIENT

DRUGS (17)
  1. ACETAMINOPHEN [Suspect]
     Active Substance: ACETAMINOPHEN
     Indication: Product used for unknown indication
     Route: 065
  2. IBUPROFEN [Suspect]
     Active Substance: IBUPROFEN
     Indication: Product used for unknown indication
     Route: 065
  3. DICLOFENAC [Suspect]
     Active Substance: DICLOFENAC
     Indication: Product used for unknown indication
     Route: 065
  4. ETODOLAC [Suspect]
     Active Substance: ETODOLAC
     Indication: Product used for unknown indication
     Route: 065
  5. FENOPROFEN [Suspect]
     Active Substance: FENOPROFEN
     Indication: Product used for unknown indication
     Route: 065
  6. FLURBIPROFEN [Suspect]
     Active Substance: FLURBIPROFEN
     Indication: Product used for unknown indication
     Route: 065
  7. INDOMETHACIN [Suspect]
     Active Substance: INDOMETHACIN
     Indication: Product used for unknown indication
     Route: 065
  8. KETOPROFEN [Suspect]
     Active Substance: KETOPROFEN
     Indication: Product used for unknown indication
     Route: 065
  9. NABUMETONE [Suspect]
     Active Substance: NABUMETONE
     Indication: Product used for unknown indication
     Route: 065
  10. NAPROXEN [Suspect]
     Active Substance: NAPROXEN
     Indication: Product used for unknown indication
     Route: 065
  11. PIROXICAM [Suspect]
     Active Substance: PIROXICAM
     Indication: Product used for unknown indication
     Route: 065
  12. SALSALATE [Suspect]
     Active Substance: SALSALATE
     Indication: Product used for unknown indication
     Route: 065
  13. SULINDAC [Suspect]
     Active Substance: SULINDAC
     Indication: Product used for unknown indication
     Route: 065
  14. TIAPROFENIC ACID [Suspect]
     Active Substance: TIAPROFENIC ACID
     Indication: Product used for unknown indication
     Route: 065
  15. TOLMETIN [Suspect]
     Active Substance: TOLMETIN
     Indication: Product used for unknown indication
     Route: 065
  16. DIFLUNISAL [Suspect]
     Active Substance: DIFLUNISAL
     Indication: Product used for unknown indication
     Route: 065
  17. MECLOFENAMIC ACID [Suspect]
     Active Substance: MECLOFENAMIC ACID
     Indication: Product used for unknown indication
     Route: 065

REACTIONS (4)
  - Upper gastrointestinal perforation [Unknown]
  - Gastroduodenal haemorrhage [Unknown]
  - Gastroduodenal ulcer [Unknown]
  - Dyspepsia [Unknown]
